FAERS Safety Report 13737957 (Version 1)
Quarter: 2017Q3

REPORT INFORMATION
  Report Type: Spontaneous
  Country: BR (occurrence: BR)
  Receive Date: 20170710
  Receipt Date: 20170710
  Transmission Date: 20171127
  Serious: Yes (Other)
  Sender: FDA-Public Use
  Company Number: PHHY2009BR11909

PATIENT
  Age: 86 Year
  Sex: Male
  Weight: 68 kg

DRUGS (5)
  1. HYDERGINE [Suspect]
     Active Substance: ERGOLOID MESYLATES
     Indication: DIZZINESS
     Dosage: 30 DRP, TID (MORNING/AFTERNOON/NIGHT)
     Route: 048
     Dates: start: 20090326, end: 20090419
  2. DILACORON [Concomitant]
     Active Substance: VERAPAMIL HYDROCHLORIDE
     Indication: HYPERTENSION
     Dosage: 120 MG, QD
     Route: 048
     Dates: start: 1989
  3. SERTRALINE HYDROCHLORIDE. [Concomitant]
     Active Substance: SERTRALINE HYDROCHLORIDE
     Indication: DEPRESSION
     Dosage: 0.1 TABLET PER DAY
     Dates: start: 200901, end: 20090405
  4. HYDERGINE [Suspect]
     Active Substance: ERGOLOID MESYLATES
     Dosage: UNK
     Route: 048
     Dates: start: 20090420
  5. PRELONE [Concomitant]
     Active Substance: PREDNISOLONE
     Indication: EAR DISORDER
     Dosage: 2 TABLETS
     Dates: start: 20090418

REACTIONS (4)
  - Blood pressure decreased [Unknown]
  - Blood pressure increased [Unknown]
  - Abdominal discomfort [Recovered/Resolved]
  - Dizziness [Recovered/Resolved]

NARRATIVE: CASE EVENT DATE: 200903
